FAERS Safety Report 4760329-4 (Version None)
Quarter: 2005Q3

REPORT INFORMATION
  Report Type: 
  Country: None (occurrence: None)
  Receive Date: 20050831
  Receipt Date: 20050830
  Transmission Date: 20060218
  Serious: Yes (Life-Threatening)
  Sender: FDA-Public Use
  Company Number: IT-SHR-04-020214

PATIENT
  Age: 72 Year
  Sex: Male

DRUGS (1)
  1. ULTRAVIST 370 [Suspect]
     Indication: COMPUTERISED TOMOGRAM
     Dosage: 120 ML, 1 DOSE, INTRAVENOUS
     Route: 042
     Dates: start: 20040114, end: 20040114

REACTIONS (1)
  - GENERALISED OEDEMA [None]
